FAERS Safety Report 17439869 (Version 2)
Quarter: 2021Q3

REPORT INFORMATION
  Report Type: Report from Study
  Country: JP (occurrence: JP)
  Receive Date: 20200220
  Receipt Date: 20210721
  Transmission Date: 20211014
  Serious: Yes (Hospitalization, Other)
  Sender: FDA-Public Use
  Company Number: JP-CELLTRION INC.-2020JP019501

PATIENT

DRUGS (8)
  1. CT?P13 [Suspect]
     Active Substance: INFLIXIMAB-DYYB
     Dosage: 550 MG (WEIGHT: 54.5 KG)
     Route: 041
     Dates: start: 20201013, end: 20201013
  2. AZATHIOPRINE. [Concomitant]
     Active Substance: AZATHIOPRINE
     Dosage: 25 MILLIGRAM/DAY
     Route: 048
     Dates: start: 20170105, end: 20210426
  3. CT?P13 [Suspect]
     Active Substance: INFLIXIMAB-DYYB
     Dosage: 540 MG (WEIGHT: 53.4 KG)
     Route: 041
     Dates: start: 20190312, end: 20190312
  4. CT?P13 [Suspect]
     Active Substance: INFLIXIMAB-DYYB
     Indication: CROHN^S DISEASE
     Dosage: 540 MG (WEIGHT: 53.5KG)
     Route: 041
     Dates: start: 20181113, end: 20181113
  5. MESALAZINE [Concomitant]
     Active Substance: MESALAMINE
     Dosage: 3000 MILLIGRAM/DAY
     Route: 048
  6. CT?P13 [Suspect]
     Active Substance: INFLIXIMAB-DYYB
     Dosage: 540 MG (WEIGHT: 53.4 KG)
     Route: 041
     Dates: start: 20190507, end: 20190507
  7. CT?P13 [Suspect]
     Active Substance: INFLIXIMAB-DYYB
     Dosage: 540 MG (WEIGHT: 54.2 KG)
     Route: 041
     Dates: start: 20191016, end: 20191016
  8. CT?P13 [Suspect]
     Active Substance: INFLIXIMAB-DYYB
     Dosage: 540 MG (WEIGHT: 54KG)
     Route: 041
     Dates: start: 20190115, end: 20190115

REACTIONS (11)
  - Otitis media [Unknown]
  - Gastric polyps [Not Recovered/Not Resolved]
  - Sinusitis [Recovered/Resolved]
  - Overdose [Unknown]
  - Cough variant asthma [Recovered/Resolved]
  - Chronic gastritis [Not Recovered/Not Resolved]
  - Fracture [Recovered/Resolved]
  - Upper-airway cough syndrome [Unknown]
  - Osteoporosis [Not Recovered/Not Resolved]
  - Off label use [Unknown]
  - Pneumonia [Recovered/Resolved]

NARRATIVE: CASE EVENT DATE: 20181211
